FAERS Safety Report 14731625 (Version 1)
Quarter: 2018Q2

REPORT INFORMATION
  Report Type: Spontaneous
  Country: US (occurrence: US)
  Receive Date: 20180407
  Receipt Date: 20180407
  Transmission Date: 20180711
  Serious: Yes (Other)
  Sender: FDA-Public Use
  Company Number: US-AMGEN-USASP2018044660

PATIENT
  Sex: Female

DRUGS (1)
  1. PROLIA [Suspect]
     Active Substance: DENOSUMAB
     Indication: OSTEOPOROSIS POSTMENOPAUSAL
     Dosage: 60 MG, UNK
     Route: 065

REACTIONS (6)
  - Bone pain [Unknown]
  - Pain in extremity [Unknown]
  - Wheelchair user [Unknown]
  - Swelling face [Unknown]
  - Rash generalised [Unknown]
  - Tremor [Unknown]

NARRATIVE: CASE EVENT DATE: 201803
